FAERS Safety Report 24147823 (Version 1)
Quarter: 2024Q3

REPORT INFORMATION
  Report Type: Report from Study
  Country: FR (occurrence: FR)
  Receive Date: 20240729
  Receipt Date: 20240729
  Transmission Date: 20241016
  Serious: Yes (Other)
  Sender: TAKEDA
  Company Number: FR-ROCHE-10000027531

PATIENT
  Age: 46 Year
  Sex: Female

DRUGS (10)
  1. BORTEZOMIB [Suspect]
     Active Substance: BORTEZOMIB
     Indication: Prophylaxis against transplant rejection
     Dosage: 1.3 MILLIGRAM/SQ. METER
     Route: 065
  2. DEXAMETHASONE [Suspect]
     Active Substance: DEXAMETHASONE
     Indication: Prophylaxis against transplant rejection
     Dosage: 25 MILLIGRAM/SQ. METER
     Route: 065
  3. RITUXIMAB [Suspect]
     Active Substance: RITUXIMAB
     Indication: Prophylaxis against transplant rejection
     Dosage: 375 MILLIGRAM/SQ. METER
     Route: 042
  4. BUSULFAN [Suspect]
     Active Substance: BUSULFAN
     Indication: Prophylaxis against transplant rejection
     Dosage: 110 MILLIGRAM/SQ. METER
     Route: 065
  5. CYCLOPHOSPHAMIDE [Suspect]
     Active Substance: CYCLOPHOSPHAMIDE
     Indication: Prophylaxis against transplant rejection
     Dosage: 500 MILLIGRAM/KILOGRAM
     Route: 065
  6. LAPINE T-LYMPHOCYTE IMMUNE GLOBULIN [Suspect]
     Active Substance: LAPINE T-LYMPHOCYTE IMMUNE GLOBULIN
     Indication: Prophylaxis against transplant rejection
     Dosage: 1.5 MILLIGRAM/SQ. METER
     Route: 065
  7. LAPINE T-LYMPHOCYTE IMMUNE GLOBULIN [Suspect]
     Active Substance: LAPINE T-LYMPHOCYTE IMMUNE GLOBULIN
     Dosage: 1 MILLIGRAM/KILOGRAM
     Route: 065
  8. FLUDARABINE [Suspect]
     Active Substance: FLUDARABINE PHOSPHATE
     Indication: Prophylaxis against transplant rejection
     Dosage: 40 MILLIGRAM/SQ. METER
     Route: 065
  9. CYCLOSPORINE [Suspect]
     Active Substance: CYCLOSPORINE
     Indication: Prophylaxis against transplant rejection
     Dosage: 1.5 MILLIGRAM/KILOGRAM, BID
     Route: 065
  10. MYCOPHENOLATE MOFETIL [Suspect]
     Active Substance: MYCOPHENOLATE MOFETIL
     Indication: Prophylaxis against transplant rejection
     Dosage: 15 MILLIGRAM/KILOGRAM, TID
     Route: 065

REACTIONS (4)
  - Human herpesvirus 6 infection [Unknown]
  - Pneumonia [Unknown]
  - Mucosal inflammation [Unknown]
  - Cytomegalovirus infection [Unknown]
